FAERS Safety Report 22066179 (Version 1)
Quarter: 2023Q1

REPORT INFORMATION
  Report Type: Spontaneous
  Country: US (occurrence: US)
  Receive Date: 20230306
  Receipt Date: 20230306
  Transmission Date: 20230417
  Serious: Yes (Other)
  Sender: FDA-Public Use
  Company Number: US-ALLERGAN-2305618US

PATIENT
  Sex: Female

DRUGS (1)
  1. BOTOX [Suspect]
     Active Substance: ONABOTULINUMTOXINA
     Indication: Muscle hypertrophy
     Dosage: UNK, SINGLE

REACTIONS (7)
  - Drug dependence [Unknown]
  - Wrong technique in product usage process [Unknown]
  - Speech disorder [Unknown]
  - Feeding disorder [Unknown]
  - Feeling abnormal [Unknown]
  - Facial paralysis [Unknown]
  - Facial paresis [Unknown]
